FAERS Safety Report 5920259-9 (Version None)
Quarter: 2008Q4

REPORT INFORMATION
  Report Type: 
  Country: None (occurrence: None)
  Receive Date: 20081014
  Receipt Date: 20081001
  Transmission Date: 20090506
  Serious: Yes (Other)
  Sender: FDA-Public Use
  Company Number: 2008AL011048

PATIENT
  Age: 66 Year
  Sex: Female

DRUGS (1)
  1. TEMAZEPAM [Suspect]
     Indication: ANXIETY
     Dosage: PO
     Route: 048
     Dates: start: 20080618

REACTIONS (5)
  - INFLAMMATION [None]
  - OESOPHAGITIS [None]
  - OROPHARYNGEAL PAIN [None]
  - PHARYNGEAL DISORDER [None]
  - THROAT IRRITATION [None]
